FAERS Safety Report 24696995 (Version 1)
Quarter: 2024Q4

REPORT INFORMATION
  Report Type: Report from Study
  Country: US (occurrence: US)
  Receive Date: 20241204
  Receipt Date: 20241204
  Transmission Date: 20250114
  Serious: Yes (Other)
  Sender: ABBVIE
  Company Number: US-ABBVIE-6026238

PATIENT
  Age: 46 Year
  Sex: Male

DRUGS (1)
  1. CREON [Suspect]
     Active Substance: PANCRELIPASE AMYLASE\PANCRELIPASE LIPASE\PANCRELIPASE PROTEASE
     Indication: Pancreaticoduodenectomy
     Dosage: CREON 3000 TAKE ONE CAPSULE BY MOUTH THREE TIMES A DAY WITH MEALS
     Route: 048
     Dates: start: 202301

REACTIONS (8)
  - Nasal injury [Unknown]
  - Mental disorder [Unknown]
  - Somnolence [Unknown]
  - Fall [Unknown]
  - Memory impairment [Unknown]
  - Head injury [Unknown]
  - Cognitive disorder [Unknown]
  - Disturbance in attention [Unknown]

NARRATIVE: CASE EVENT DATE: 20230101
